FAERS Safety Report 13753598 (Version 1)
Quarter: 2017Q3

REPORT INFORMATION
  Report Type: Spontaneous
  Country: FR (occurrence: FR)
  Receive Date: 20170714
  Receipt Date: 20170714
  Transmission Date: 20171127
  Serious: Yes (Hospitalization)
  Sender: FDA-Public Use
  Company Number: FR-SA-2017SA105310

PATIENT
  Age: 46 Year
  Sex: Male

DRUGS (2)
  1. IMMUCYST [Suspect]
     Active Substance: BACILLUS CALMETTE-GUERIN SUBSTRAIN CONNAUGHT LIVE ANTIGEN
     Indication: URINARY BLADDER POLYP
     Dosage: WHITE AND ORANGE COLORED VIAL
     Route: 043
  2. IMMUCYST [Suspect]
     Active Substance: BACILLUS CALMETTE-GUERIN SUBSTRAIN CONNAUGHT LIVE ANTIGEN
     Indication: URINARY BLADDER POLYP
     Dosage: WHITE AND BLUE COLORED VIAL
     Route: 043
     Dates: start: 20170518, end: 20170518

REACTIONS (8)
  - Oedema [Recovered/Resolved]
  - Paraesthesia [Recovered/Resolved]
  - Urinary retention [Recovered/Resolved]
  - Urine abnormality [Recovered/Resolved]
  - Burning sensation [Recovered/Resolved]
  - Condition aggravated [Recovered/Resolved]
  - Pollakiuria [Recovered/Resolved]
  - Bladder pain [Recovered/Resolved]

NARRATIVE: CASE EVENT DATE: 20170518
